FAERS Safety Report 13171850 (Version 1)
Quarter: 2017Q1

REPORT INFORMATION
  Report Type: Spontaneous
  Country: US (occurrence: US)
  Receive Date: 20170201
  Receipt Date: 20170201
  Transmission Date: 20170428
  Serious: No
  Sender: FDA-Public Use
  Company Number: US-PFIZER INC-2017038484

PATIENT
  Age: 60 Year
  Sex: Male

DRUGS (4)
  1. CELEBREX [Suspect]
     Active Substance: CELECOXIB
     Dosage: UNK
  2. ASPIRIN. [Concomitant]
     Active Substance: ASPIRIN
     Indication: BLOOD PRESSURE ABNORMAL
     Dosage: 81 MG, UNK
  3. HABITROL [Suspect]
     Active Substance: NICOTINE
     Indication: SMOKING CESSATION THERAPY
     Dosage: 14 MG, DAILY (EVERY 24 HOURS)
     Route: 062
     Dates: start: 20170123
  4. NICOTINE TRANSDERMAL SYSTEM [Suspect]
     Active Substance: NICOTINE
     Indication: SMOKING CESSATION THERAPY
     Dosage: 14 MG, 1X/DAY (EVERY 24 HOURS)
     Route: 062
     Dates: start: 20170123

REACTIONS (2)
  - Nicotine dependence [Unknown]
  - Abnormal dreams [Recovered/Resolved]
